FAERS Safety Report 19173322 (Version 1)
Quarter: 2021Q2

REPORT INFORMATION
  Report Type: Spontaneous
  Country: FR (occurrence: FR)
  Receive Date: 20210423
  Receipt Date: 20210423
  Transmission Date: 20210717
  Serious: Yes (Life-Threatening, Hospitalization)
  Sender: FDA-Public Use
  Company Number: FR-MYLANLABS-2021M1023799

PATIENT
  Age: 56 Year
  Sex: Male

DRUGS (7)
  1. ESOMEPRAZOLE. [Suspect]
     Active Substance: ESOMEPRAZOLE MAGNESIUM
     Indication: GASTRINOMA
     Dosage: 80 MILLIGRAM, QD
     Route: 065
  2. ESOMEPRAZOLE. [Suspect]
     Active Substance: ESOMEPRAZOLE MAGNESIUM
     Dosage: 120 MILLIGRAM, QD
     Route: 065
  3. CABERGOLINE. [Concomitant]
     Active Substance: CABERGOLINE
     Indication: BLOOD PROLACTIN INCREASED
     Dosage: UNK
     Route: 065
  4. CINACALCET. [Concomitant]
     Active Substance: CINACALCET
     Indication: HYPERCALCAEMIA
  5. RANITIDINE. [Concomitant]
     Active Substance: RANITIDINE
     Indication: GASTRINOMA
     Dosage: 600 MILLIGRAM, QD
     Route: 065
  6. ESOMEPRAZOLE. [Suspect]
     Active Substance: ESOMEPRAZOLE MAGNESIUM
     Dosage: 240 MILLIGRAM, QD
     Route: 065
     Dates: start: 20180619
  7. CINACALCET. [Concomitant]
     Active Substance: CINACALCET
     Indication: HYPERPARATHYROIDISM PRIMARY
     Dosage: UNK
     Route: 065

REACTIONS (5)
  - Hypomagnesaemia [Recovered/Resolved]
  - Cerebellar syndrome [Recovering/Resolving]
  - Loss of consciousness [Recovering/Resolving]
  - Seizure [Unknown]
  - Metabolic alkalosis [Unknown]

NARRATIVE: CASE EVENT DATE: 201806
